FAERS Safety Report 8533344-2 (Version None)
Quarter: 2012Q3

REPORT INFORMATION
  Report Type: 
  Country: None (occurrence: None)
  Receive Date: 20120724
  Receipt Date: 20120713
  Transmission Date: 20120928
  Serious: Yes (Other)
  Sender: FDA-Public Use
  Company Number: JP-VERTEX PHARMACEUTICALS INC.-AE-2012-006218

PATIENT
  Age: 63 Year
  Sex: Male

DRUGS (16)
  1. REBETOL [Concomitant]
     Indication: HEPATITIS C
     Route: 048
     Dates: start: 20120117, end: 20120214
  2. REBETOL [Concomitant]
     Route: 048
     Dates: start: 20120313, end: 20120410
  3. REBETOL [Concomitant]
     Route: 048
     Dates: start: 20120530, end: 20120627
  4. LIVALO [Concomitant]
     Route: 048
  5. REBETOL [Concomitant]
     Route: 048
     Dates: start: 20120229
  6. TELAVIC (TELAPREVIR) [Suspect]
     Indication: HEPATITIS C
     Route: 048
     Dates: start: 20120117, end: 20120411
  7. REBETOL [Concomitant]
     Route: 048
     Dates: start: 20120215, end: 20120228
  8. REBETOL [Concomitant]
     Route: 048
     Dates: start: 20120411, end: 20120508
  9. PEG-INTRON [Concomitant]
     Route: 058
     Dates: end: 20120627
  10. REBETOL [Concomitant]
     Route: 048
     Dates: start: 20120307, end: 20120312
  11. EPADEL S [Concomitant]
     Route: 048
  12. LIVALO [Concomitant]
     Route: 048
  13. REBETOL [Concomitant]
     Route: 048
     Dates: start: 20120509, end: 20120529
  14. CLARITIN REDITABS [Concomitant]
     Route: 048
  15. FEROTYM [Concomitant]
     Route: 048
  16. LIVALO [Concomitant]
     Route: 048

REACTIONS (2)
  - ANAEMIA [None]
  - RENAL DISORDER [None]
